FAERS Safety Report 23812609 (Version 1)
Quarter: 2024Q2

REPORT INFORMATION
  Report Type: Spontaneous
  Country: SE (occurrence: SE)
  Receive Date: 20240503
  Receipt Date: 20240503
  Transmission Date: 20240716
  Serious: Yes (Hospitalization)
  Sender: FDA-Public Use
  Company Number: None

PATIENT
  Age: 54 Year
  Sex: Male

DRUGS (4)
  1. OLANZAPINE PAMOATE [Suspect]
     Active Substance: OLANZAPINE PAMOATE
     Indication: Schizophrenia
     Dosage: 1 TIME EVERY 28 DAYS
     Route: 030
  2. OLANZAPINE PAMOATE [Suspect]
     Active Substance: OLANZAPINE PAMOATE
     Indication: Schizophrenia
     Dosage: 1 TIME EVERY 28 DAYS. THE INJECTION WAS NOT CLEARLY GIVEN INTRAVASCULARLY
  3. OLANZAPINE [Concomitant]
     Active Substance: OLANZAPINE
     Dosage: 2 KL 08
     Route: 048
  4. SERTRALINE HYDROCHLORIDE [Concomitant]
     Active Substance: SERTRALINE HYDROCHLORIDE
     Dosage: 3 X1
     Route: 048

REACTIONS (6)
  - Somnolence [Recovered/Resolved]
  - Urinary retention [Recovered/Resolved]
  - Confusional state [Recovered/Resolved]
  - Post-injection delirium sedation syndrome [Recovered/Resolved]
  - Aspiration [Unknown]
  - Off label use [Unknown]

NARRATIVE: CASE EVENT DATE: 20240412
